FAERS Safety Report 4600568-6 (Version None)
Quarter: 2005Q1

REPORT INFORMATION
  Report Type: 
  Country: None (occurrence: None)
  Receive Date: 20050127
  Receipt Date: 20041007
  Transmission Date: 20050727
  Serious: No
  Sender: FDA-Public Use
  Company Number: USA041080525

PATIENT
  Sex: Female

DRUGS (2)
  1. STRATTERA [Suspect]
     Indication: ATTENTION DEFICIT/HYPERACTIVITY DISORDER
     Dosage: 40 MG DAY
     Dates: end: 20040101
  2. PROZAC [Suspect]
     Indication: ATTENTION DEFICIT/HYPERACTIVITY DISORDER
     Dosage: 5 MG DAY

REACTIONS (8)
  - AGITATION [None]
  - ANXIETY [None]
  - CRYING [None]
  - DEPRESSION [None]
  - DYSURIA [None]
  - FEELING JITTERY [None]
  - SLEEP DISORDER [None]
  - URINARY HESITATION [None]
